FAERS Safety Report 4575987-7 (Version None)
Quarter: 2005Q1

REPORT INFORMATION
  Report Type: 
  Country: None (occurrence: None)
  Receive Date: 20050209
  Receipt Date: 20050201
  Transmission Date: 20050727
  Serious: Yes (Other)
  Sender: FDA-Public Use
  Company Number: PHBS2005CA01719

PATIENT
  Age: 5 Year
  Sex: Female

DRUGS (3)
  1. ELIDEL [Suspect]
     Dosage: UNK, BID
     Route: 061
     Dates: start: 20050129, end: 20050129
  2. DILANTIN [Concomitant]
  3. LAMICTAL [Concomitant]

REACTIONS (1)
  - CONVULSION [None]
